FAERS Safety Report 6259822-7 (Version None)
Quarter: 2009Q3

REPORT INFORMATION
  Report Type: 
  Country: None (occurrence: None)
  Receive Date: 20090706
  Receipt Date: 20090706
  Transmission Date: 20100115
  Serious: Yes (Life-Threatening)
  Sender: FDA-Public Use
  Company Number: None

PATIENT
  Age: 10 Year
  Sex: Male
  Weight: 31 kg

DRUGS (8)
  1. CEFTAZIDIME [Suspect]
     Indication: BACTERIAL INFECTION
     Dosage: 1500 MG EVERY 8 HOURS IV BOLUS
     Route: 040
     Dates: start: 20090623, end: 20090623
  2. FLUCONAZOLE [Concomitant]
  3. MESNA [Concomitant]
  4. IFOSFAMIDE [Concomitant]
  5. ETOPOSIDE [Concomitant]
  6. ONDANESTRON [Concomitant]
  7. BACTRIM [Concomitant]
  8. FILGASTRIM [Concomitant]

REACTIONS (5)
  - BODY TEMPERATURE INCREASED [None]
  - HAEMOLYTIC ANAEMIA [None]
  - HEADACHE [None]
  - INTRAVASCULAR HAEMOLYSIS [None]
  - MENTAL STATUS CHANGES [None]
